FAERS Safety Report 14354782 (Version 1)
Quarter: 2018Q1

REPORT INFORMATION
  Report Type: Spontaneous
  Country: PL (occurrence: PL)
  Receive Date: 20180105
  Receipt Date: 20180105
  Transmission Date: 20180509
  Serious: Yes (Hospitalization, Other)
  Sender: FDA-Public Use
  Company Number: PL-LUPIN PHARMACEUTICALS INC.-2017-07667

PATIENT
  Age: 35 Year
  Sex: Female

DRUGS (5)
  1. CEFTRIAXONE. [Suspect]
     Active Substance: CEFTRIAXONE
     Indication: IMMUNODEFICIENCY COMMON VARIABLE
     Dosage: 1000 MG, QD
     Route: 065
  2. CLAVULANATE POTASSIUM [Concomitant]
     Active Substance: CLAVULANATE POTASSIUM
     Indication: IMMUNODEFICIENCY COMMON VARIABLE
     Dosage: 200 MG, TID
     Route: 065
  3. AZITHROMYCIN ANHYDROUS. [Suspect]
     Active Substance: AZITHROMYCIN ANHYDROUS
     Indication: IMMUNODEFICIENCY COMMON VARIABLE
     Dosage: 500 MG, QD
     Route: 065
  4. AMOXICILLIN. [Concomitant]
     Active Substance: AMOXICILLIN
     Indication: IMMUNODEFICIENCY COMMON VARIABLE
     Dosage: 1000 MG, TID
     Route: 065
  5. CEFADROXIL. [Suspect]
     Active Substance: CEFADROXIL
     Indication: IMMUNODEFICIENCY COMMON VARIABLE
     Dosage: 500 MG, BID
     Route: 065

REACTIONS (6)
  - Opportunistic infection [Recovered/Resolved]
  - Pyogenic granuloma [Recovered/Resolved]
  - Drug ineffective [Unknown]
  - Drug resistance [Recovered/Resolved]
  - Periodontitis [Recovered/Resolved]
  - Disease progression [Unknown]
